FAERS Safety Report 8365093-8 (Version None)
Quarter: 2012Q2

REPORT INFORMATION
  Report Type: 
  Country: None (occurrence: None)
  Receive Date: 20120516
  Receipt Date: 20120508
  Transmission Date: 20120825
  Serious: Yes (Other)
  Sender: FDA-Public Use
  Company Number: US-ASTRAZENECA-2012SE29778

PATIENT
  Age: 47 Year
  Sex: Female

DRUGS (3)
  1. HIGH ANXIETY MEDICATION [Concomitant]
  2. NEXIUM [Suspect]
     Route: 048
  3. BLOOD THINNER [Concomitant]

REACTIONS (5)
  - HYPERTENSION [None]
  - PULMONARY EMBOLISM [None]
  - HEART RATE INCREASED [None]
  - GASTROOESOPHAGEAL REFLUX DISEASE [None]
  - STRESS [None]
